FAERS Safety Report 15905678 (Version 3)
Quarter: 2019Q1

REPORT INFORMATION
  Report Type: Spontaneous
  Country: JP (occurrence: JP)
  Receive Date: 20190204
  Receipt Date: 20190227
  Transmission Date: 20190417
  Serious: Yes (Death)
  Sender: FDA-Public Use
  Company Number: JP-JNJFOC-20190139728

PATIENT
  Age: 86 Year
  Sex: Male

DRUGS (1)
  1. ONEDURO [Suspect]
     Active Substance: FENTANYL
     Indication: PAIN
     Dosage: 12.5 MCG/HR
     Route: 062
     Dates: start: 20190126, end: 20190128

REACTIONS (1)
  - Spinal cord injury cervical [Fatal]

NARRATIVE: CASE EVENT DATE: 20190126
